FAERS Safety Report 4675176-1 (Version None)
Quarter: 2005Q2

REPORT INFORMATION
  Report Type: 
  Country: None (occurrence: None)
  Receive Date: 20050526
  Receipt Date: 20050512
  Transmission Date: 20051028
  Serious: Yes (Other)
  Sender: FDA-Public Use
  Company Number: 2005002315

PATIENT
  Age: 75 Year
  Sex: Female
  Weight: 82.5547 kg

DRUGS (10)
  1. CELEBREX [Suspect]
     Indication: OSTEOARTHRITIS
     Dosage: 400 MG (200 MG, 2 IN 1 D), ORAL
     Route: 048
  2. ETODOLAC [Suspect]
     Indication: OSTEOARTHRITIS
     Dosage: 800 MG (400 MG, 2 IN 1 D), ORAL
     Route: 048
     Dates: start: 20050101
  3. ULTRAM [Concomitant]
  4. ALL OTHER THERAPEUTIC PRODUCTS (ALL OTHER THERAPEUTIC PRODUCTS) [Concomitant]
  5. MECLIZINE [Concomitant]
  6. PREMPRO [Concomitant]
  7. MIRAPEX [Concomitant]
  8. ANTIHYPERTENSIVES (ANTIHYPERTENSIVES) [Concomitant]
  9. ASPIRIN [Concomitant]
  10. VITAMINS (VITAMINS) [Concomitant]

REACTIONS (10)
  - ARTHRITIS [None]
  - BLOOD PRESSURE ABNORMAL [None]
  - BODY HEIGHT DECREASED [None]
  - CARDIAC NEOPLASM MALIGNANT [None]
  - CORONARY ARTERY OCCLUSION [None]
  - DIZZINESS [None]
  - DRUG INEFFECTIVE [None]
  - MYOCARDIAL INFARCTION [None]
  - SELF-MEDICATION [None]
  - VERTIGO [None]
